FAERS Safety Report 11483568 (Version 1)
Quarter: 2015Q3

REPORT INFORMATION
  Report Type: Spontaneous
  Country: US (occurrence: US)
  Receive Date: 20150903
  Receipt Date: 20150903
  Transmission Date: 20151125
  Serious: No
  Sender: FDA-Public Use
  Company Number: US-ELI_LILLY_AND_COMPANY-US201202004778

PATIENT
  Sex: Female

DRUGS (3)
  1. CYMBALTA [Suspect]
     Active Substance: DULOXETINE HYDROCHLORIDE
     Dosage: 90 MG, QD
  2. CYMBALTA [Suspect]
     Active Substance: DULOXETINE HYDROCHLORIDE
     Dosage: 60 MG, QD
  3. CYMBALTA [Suspect]
     Active Substance: DULOXETINE HYDROCHLORIDE
     Indication: DEPRESSION
     Dosage: 30 MG, QD
     Dates: start: 20120210

REACTIONS (15)
  - Nausea [Unknown]
  - Fatigue [Not Recovered/Not Resolved]
  - Oral pain [Unknown]
  - Rash [Unknown]
  - Dry mouth [Unknown]
  - Constipation [Not Recovered/Not Resolved]
  - Dental implantation [Unknown]
  - Micturition disorder [Not Recovered/Not Resolved]
  - Urinary hesitation [Unknown]
  - Fluid retention [Not Recovered/Not Resolved]
  - Somnolence [Not Recovered/Not Resolved]
  - Decreased appetite [Not Recovered/Not Resolved]
  - Weight increased [Not Recovered/Not Resolved]
  - Peripheral swelling [Not Recovered/Not Resolved]
  - Dysuria [Not Recovered/Not Resolved]
